FAERS Safety Report 6033391-9 (Version None)
Quarter: 2009Q1

REPORT INFORMATION
  Report Type: 
  Country: None (occurrence: None)
  Receive Date: 20090109
  Receipt Date: 20081229
  Transmission Date: 20090719
  Serious: Yes (Hospitalization)
  Sender: FDA-Public Use
  Company Number: US-PFIZER INC-2008069312

PATIENT
  Sex: Male
  Weight: 181.86 kg

DRUGS (14)
  1. BLINDED *PLACEBO [Suspect]
     Indication: HYPERTONIC BLADDER
     Dosage: FREQUENCY: QD
     Route: 048
     Dates: start: 20080718
  2. BLINDED FESOTERODINE [Suspect]
     Indication: HYPERTONIC BLADDER
     Dosage: FREQUENCY: QD
     Route: 048
     Dates: start: 20080718
  3. TAMSULOSIN HCL [Concomitant]
     Route: 048
     Dates: start: 20071215
  4. GLUCOPHAGE [Concomitant]
     Route: 048
     Dates: start: 20060615
  5. LISINOPRIL [Concomitant]
     Route: 048
     Dates: start: 20000718
  6. GLIMEPIRIDE [Concomitant]
     Route: 048
     Dates: start: 20000615
  7. METOPROLOL TARTRATE [Concomitant]
     Route: 048
     Dates: start: 20000615
  8. PLAVIX [Concomitant]
     Route: 048
     Dates: start: 20000615
  9. ACETYLSALICYLIC ACID [Concomitant]
     Route: 048
     Dates: start: 20000615
  10. ATORVASTATIN CALCIUM [Concomitant]
     Route: 048
     Dates: start: 20000615
  11. PIOGLITAZONE HCL [Concomitant]
     Route: 048
     Dates: start: 20000615
  12. INSULIN GLARGINE [Concomitant]
     Route: 050
     Dates: start: 20040615
  13. NITROGLYCERIN [Concomitant]
     Route: 048
     Dates: start: 20071215
  14. ESCITALOPRAM OXALATE [Concomitant]
     Route: 048
     Dates: start: 20050615

REACTIONS (2)
  - CELLULITIS [None]
  - LYMPHADENOPATHY [None]
